FAERS Safety Report 20701218 (Version 1)
Quarter: 2022Q2

REPORT INFORMATION
  Report Type: Report from Study
  Country: EG (occurrence: EG)
  Receive Date: 20220412
  Receipt Date: 20220412
  Transmission Date: 20220721
  Serious: Yes (Hospitalization, Other)
  Sender: FDA-Public Use
  Company Number: EG-NOVARTISPH-NVSC2022EG080353

PATIENT
  Age: 71 Year
  Sex: Male

DRUGS (1)
  1. COSENTYX [Suspect]
     Active Substance: SECUKINUMAB
     Indication: Psoriasis
     Dosage: UNK, 2 PREFILLED PENS OF COSENTYX 150MG SIMULTANEOUSLY EVERY 15 OR 20 DAYS ( A TOTAL OF 8 DOSES)
     Route: 058
     Dates: start: 20210401, end: 20210630

REACTIONS (8)
  - Testicular abscess [Recovered/Resolved]
  - Pustule [Recovered/Resolved]
  - Gangrene [Recovered/Resolved]
  - Abdominal distension [Recovered/Resolved]
  - Pain [Recovered/Resolved]
  - Urinary tract inflammation [Recovered/Resolved]
  - Psoriasis [Not Recovered/Not Resolved]
  - Fatigue [Not Recovered/Not Resolved]

NARRATIVE: CASE EVENT DATE: 20210412
